FAERS Safety Report 19488347 (Version 2)
Quarter: 2021Q3

REPORT INFORMATION
  Report Type: Report from Study
  Country: US (occurrence: US)
  Receive Date: 20210702
  Receipt Date: 20210901
  Transmission Date: 20211014
  Serious: Yes (Death)
  Sender: FDA-Public Use
  Company Number: US-PFIZER INC-2021795417

PATIENT

DRUGS (2)
  1. OXALIPLATIN. [Suspect]
     Active Substance: OXALIPLATIN
     Indication: GASTROOESOPHAGEAL CANCER
     Dosage: 130 MG/M^2, DAY 1, EVERY 3 WEEKS OR 85 MG/M^2, DAY 1, EVERY 2 WEEKS
     Route: 042
  2. BMS?936558 [Suspect]
     Active Substance: NIVOLUMAB
     Indication: GASTROOESOPHAGEAL CANCER
     Dosage: 360 MG EVERY 3 WEEKS OR 240 MG EVERY 2 WEEKS
     Route: 042

REACTIONS (1)
  - Mesenteric vein thrombosis [Fatal]
